FAERS Safety Report 4440648-1 (Version None)
Quarter: 2004Q3

REPORT INFORMATION
  Report Type: 
  Country: None (occurrence: None)
  Receive Date: 20040903
  Receipt Date: 20030917
  Transmission Date: 20050211
  Serious: Yes (Hospitalization, Other)
  Sender: FDA-Public Use
  Company Number: DE-AMGEN-US049679

PATIENT
  Sex: Female

DRUGS (5)
  1. ENBREL [Suspect]
     Indication: JUVENILE ARTHRITIS
     Route: 058
  2. METHOTREXATE [Concomitant]
  3. NAPROXEN [Concomitant]
  4. PREDNISONE [Concomitant]
  5. FOLIC ACID [Concomitant]

REACTIONS (3)
  - CONVULSION [None]
  - DEMYELINATION [None]
  - GASTROENTERITIS ROTAVIRUS [None]
